FAERS Safety Report 23226406 (Version 1)
Quarter: 2023Q4

REPORT INFORMATION
  Report Type: Spontaneous
  Country: US (occurrence: None)
  Receive Date: 20231122
  Receipt Date: 20231122
  Transmission Date: 20240109
  Serious: Yes (Hospitalization)
  Sender: FDA-Public Use
  Company Number: None

PATIENT
  Sex: Female

DRUGS (1)
  1. CAPECITABINE [Suspect]
     Active Substance: CAPECITABINE
     Indication: Colon cancer
     Dosage: OTHER FREQUENCY : 7 DAYS ON, 7 DAYS ;?
     Route: 048
     Dates: start: 202309

REACTIONS (6)
  - Colitis [None]
  - Diarrhoea [None]
  - Escherichia test positive [None]
  - Urinary tract infection [None]
  - Colectomy [None]
  - Abdominal pain [None]
